FAERS Safety Report 9615624 (Version 1)
Quarter: 2013Q4

REPORT INFORMATION
  Report Type: Spontaneous
  Country: US (occurrence: None)
  Receive Date: 20131010
  Receipt Date: 20131010
  Transmission Date: 20140711
  Serious: No
  Sender: FDA-Public Use
  Company Number: None

PATIENT
  Age: 58 Year
  Sex: Female
  Weight: 68.04 kg

DRUGS (1)
  1. VENLAXAFINE [Suspect]
     Indication: DEPRESSION
     Dosage: ONE TAB ONCE DAILY TAKEN BY MOUTH
     Route: 048
     Dates: start: 20130928, end: 20131005

REACTIONS (7)
  - Anxiety [None]
  - Depression [None]
  - Pain [None]
  - Paraesthesia [None]
  - Vertigo [None]
  - Headache [None]
  - Blood pressure increased [None]
